FAERS Safety Report 12718588 (Version 1)
Quarter: 2016Q3

REPORT INFORMATION
  Report Type: Report from Study
  Country: CH (occurrence: CH)
  Receive Date: 20160906
  Receipt Date: 20160906
  Transmission Date: 20161109
  Serious: Yes (Other)
  Sender: FDA-Public Use
  Company Number: CH-GILEAD-2016-0217715

PATIENT
  Age: 62 Year
  Sex: Male

DRUGS (13)
  1. TENOFOVIR DISOPROXIL FUMARATE. [Suspect]
     Active Substance: TENOFOVIR DISOPROXIL FUMARATE
     Indication: CHRONIC HEPATITIS B
     Route: 065
  2. NORVIR [Concomitant]
     Active Substance: RITONAVIR
  3. ETRAVIRINE [Concomitant]
     Active Substance: ETRAVIRINE
  4. FOSAMPRENAVIR W/RITONAVIR [Concomitant]
     Active Substance: FOSAMPRENAVIR\RITONAVIR
  5. TENOFOVIR DISOPROXIL FUMARATE. [Suspect]
     Active Substance: TENOFOVIR DISOPROXIL FUMARATE
     Indication: HIV INFECTION
  6. ENTECAVIR. [Concomitant]
     Active Substance: ENTECAVIR
  7. DARUNAVIR W/RITONAVIR [Concomitant]
     Active Substance: DARUNAVIR\RITONAVIR
  8. DOLUTEGRAVIR [Concomitant]
     Active Substance: DOLUTEGRAVIR
  9. ATAZANAVIR [Concomitant]
     Active Substance: ATAZANAVIR
  10. EFAVIRENZ [Concomitant]
     Active Substance: EFAVIRENZ
  11. INTELENCE [Concomitant]
     Active Substance: ETRAVIRINE
  12. TIVICAY [Concomitant]
     Active Substance: DOLUTEGRAVIR SODIUM
  13. PREZISTA [Concomitant]
     Active Substance: DARUNAVIR ETHANOLATE

REACTIONS (4)
  - Fanconi syndrome acquired [Unknown]
  - Chronic kidney disease [Unknown]
  - Osteoporotic fracture [Unknown]
  - Renal tubular disorder [Unknown]

NARRATIVE: CASE EVENT DATE: 2014
